FAERS Safety Report 9223099 (Version 1)
Quarter: 2013Q2

REPORT INFORMATION
  Report Type: Spontaneous
  Country: US (occurrence: US)
  Receive Date: 20130410
  Receipt Date: 20130410
  Transmission Date: 20140414
  Serious: No
  Sender: FDA-Public Use
  Company Number: US-009507513-1304USA002574

PATIENT
  Age: 34 Year
  Sex: Male

DRUGS (4)
  1. NASONEX [Suspect]
     Indication: RHINITIS
     Dosage: 2 SPRAYS EACH NOSTRIL ONCE A DAY
     Route: 045
  2. NASONEX [Suspect]
     Indication: HYPERSENSITIVITY
  3. CLARINEX [Concomitant]
  4. SINGULAIR [Concomitant]
     Route: 048

REACTIONS (2)
  - Headache [Recovering/Resolving]
  - Headache [Not Recovered/Not Resolved]
